FAERS Safety Report 9172739 (Version 1)
Quarter: 2012Q4

REPORT INFORMATION
  Report Type: 
  Country: US (occurrence: US)
  Receive Date: 20120911
  Receipt Date: 20120911
  Transmission Date: 20130627
  Serious: Yes (Other)
  Sender: FDA-Public Use
  Company Number: US-WATSON-2012-15517

PATIENT
  Age: 40 Year
  Sex: Female

DRUGS (3)
  1. ACETAMINOPHEN [Suspect]
     Indication: DRUG ABUSE
     Dosage: UNK
     Route: 045
  2. ACETAMINOPHEN [Suspect]
     Indication: ANALGESIC THERAPY
  3. OXYCODONE AND ACETAMINOPHEN [Suspect]
     Indication: DRUG ABUSE
     Dosage: UNK
     Route: 045

REACTIONS (3)
  - Nasopharyngitis [Unknown]
  - Drug abuse [Unknown]
  - Incorrect route of drug administration [None]
